FAERS Safety Report 5816191-1 (Version None)
Quarter: 2008Q3

REPORT INFORMATION
  Report Type: 
  Country: None (occurrence: None)
  Receive Date: 20080721
  Receipt Date: 20080710
  Transmission Date: 20090109
  Serious: Yes (Other)
  Sender: FDA-Public Use
  Company Number: B0361278A

PATIENT
  Age: 51 Year
  Sex: Female

DRUGS (3)
  1. SEROXAT [Suspect]
     Route: 065
     Dates: start: 20000612
  2. OXAZEPAM [Concomitant]
     Dates: start: 20000605
  3. DIAZEPAM [Concomitant]
     Route: 065
     Dates: start: 20000214

REACTIONS (34)
  - AGITATION [None]
  - ANXIETY [None]
  - CHEST PAIN [None]
  - CONFUSIONAL STATE [None]
  - CONSTIPATION [None]
  - CRYING [None]
  - DEPRESSED MOOD [None]
  - DEPRESSION [None]
  - DISTURBANCE IN ATTENTION [None]
  - DRUG WITHDRAWAL SYNDROME [None]
  - DYSSOMNIA [None]
  - EUPHORIC MOOD [None]
  - FALL [None]
  - FATIGUE [None]
  - FEELING ABNORMAL [None]
  - FLASHBACK [None]
  - HYPERHIDROSIS [None]
  - INSOMNIA [None]
  - MALAISE [None]
  - MEMORY IMPAIRMENT [None]
  - MORBID THOUGHTS [None]
  - MYALGIA [None]
  - PALPITATIONS [None]
  - PANIC DISORDER [None]
  - POOR QUALITY SLEEP [None]
  - PSYCHIATRIC SYMPTOM [None]
  - RESTLESSNESS [None]
  - SENSATION OF HEAVINESS [None]
  - SOCIAL AVOIDANT BEHAVIOUR [None]
  - SOMNOLENCE [None]
  - SUICIDAL IDEATION [None]
  - TREMOR [None]
  - VISION BLURRED [None]
  - WEIGHT DECREASED [None]
